FAERS Safety Report 9746024 (Version 2)
Quarter: 2014Q1

REPORT INFORMATION
  Report Type: Report from Study
  Country: ES (occurrence: ES)
  Receive Date: 20131211
  Receipt Date: 20140205
  Transmission Date: 20141002
  Serious: No
  Sender: FDA-Public Use
  Company Number: ES-009507513-1312ESP004300

PATIENT
  Age: 45 Year
  Sex: Male
  Weight: 68 kg

DRUGS (3)
  1. PEGINTERFERON ALFA-2B [Suspect]
     Indication: CHRONIC HEPATITIS C
     Dosage: 100 MICROGRAM PER KILOGRAM, QW
     Route: 058
     Dates: start: 20130927, end: 2013
  2. PEGINTERFERON ALFA-2B [Suspect]
     Dosage: 80 UG/KG/WEEK
     Route: 058
     Dates: start: 20131128
  3. RIBAVIRIN [Suspect]
     Indication: CHRONIC HEPATITIS C
     Dosage: 1000 MG/DAY
     Dates: start: 20130927

REACTIONS (1)
  - Neutropenia [Recovered/Resolved]
